FAERS Safety Report 14063457 (Version 2)
Quarter: 2017Q4

REPORT INFORMATION
  Report Type: Report from Study
  Country: US (occurrence: BR)
  Receive Date: 20171009
  Receipt Date: 20171020
  Transmission Date: 20180321
  Serious: Yes (Hospitalization, Other)
  Sender: FDA-Public Use
  Company Number: US-SUNOVION-2017SUN004317

PATIENT
  Age: 75 Year
  Sex: Female
  Weight: 80 kg

DRUGS (9)
  1. FORASEQ [Suspect]
     Active Substance: BUDESONIDE\FORMOTEROL FUMARATE
     Indication: LUNG DISORDER
     Dosage: 1 DF, BID (FROM 3 YEARS AGO)
     Route: 055
  2. DAXAS [Concomitant]
     Active Substance: ROFLUMILAST
     Dosage: UNK
  3. ETNA [Concomitant]
     Active Substance: UNSPECIFIED INGREDIENT
     Dosage: UNK
  4. ANTIHYPERTENSIVES [Concomitant]
     Active Substance: UNSPECIFIED INGREDIENT
     Indication: HYPERTENSION
  5. FUROSEMIDE. [Concomitant]
     Active Substance: FUROSEMIDE
     Dosage: UNK
  6. LOSARTAN. [Concomitant]
     Active Substance: LOSARTAN
     Dosage: 50 MG, UNK
  7. DAXAS [Concomitant]
     Active Substance: ROFLUMILAST
     Dosage: UNK
  8. NITRENDIPINE [Concomitant]
     Active Substance: NITRENDIPINE
     Dosage: UNK
  9. GLYCOPYRROLATE. [Suspect]
     Active Substance: GLYCOPYRROLATE
     Indication: LUNG DISORDER
     Dosage: 1 DF, QD (SINCE TWO YEARS AGO)
     Route: 055

REACTIONS (21)
  - Pneumonia [Recovering/Resolving]
  - Diabetes mellitus [Recovering/Resolving]
  - Blood uric acid increased [Unknown]
  - Constipation [Unknown]
  - Malaise [Unknown]
  - Zika virus infection [Recovering/Resolving]
  - Accident [Recovered/Resolved]
  - Limb injury [Recovered/Resolved]
  - Hyperglycaemia [Unknown]
  - Fall [Unknown]
  - Rib fracture [Recovering/Resolving]
  - Fatigue [Not Recovered/Not Resolved]
  - Flatulence [Unknown]
  - Abdominal distension [Unknown]
  - Tension [Unknown]
  - Blood triglycerides increased [Unknown]
  - Contusion [Recovered/Resolved]
  - Product use in unapproved indication [Unknown]
  - Pain [Unknown]
  - Lung disorder [Unknown]
  - Oxygen consumption decreased [Unknown]

NARRATIVE: CASE EVENT DATE: 201606
